FAERS Safety Report 8198274-7 (Version None)
Quarter: 2012Q1

REPORT INFORMATION
  Report Type: 
  Country: None (occurrence: None)
  Receive Date: 20120309
  Receipt Date: 20120302
  Transmission Date: 20120608
  Serious: Yes (Hospitalization, Other)
  Sender: FDA-Public Use
  Company Number: PHHY2012FR018888

PATIENT
  Age: 56 Year
  Sex: Female

DRUGS (1)
  1. GLEEVEC [Suspect]
     Indication: CHRONIC MYELOID LEUKAEMIA
     Dosage: 400 MG, QD
     Route: 048
     Dates: start: 20000101

REACTIONS (4)
  - FALL [None]
  - SUBDURAL HAEMATOMA [None]
  - HEADACHE [None]
  - CRANIAL NERVE DISORDER [None]
